FAERS Safety Report 12992971 (Version 1)
Quarter: 2016Q4

REPORT INFORMATION
  Report Type: Spontaneous
  Country: GB (occurrence: GB)
  Receive Date: 20161202
  Receipt Date: 20161202
  Transmission Date: 20170207
  Serious: Yes (Other)
  Sender: FDA-Public Use
  Company Number: GB-AUROBINDO-AUR-APL-2016-14434

PATIENT
  Age: 84 Year
  Sex: Male

DRUGS (4)
  1. DOXAZOSIN 4 MG [Suspect]
     Active Substance: DOXAZOSIN\DOXAZOSIN MESYLATE
     Indication: PRODUCT USED FOR UNKNOWN INDICATION
     Dosage: 4 MG, DAILY
     Route: 065
     Dates: end: 20161025
  2. LIPITOR [Suspect]
     Active Substance: ATORVASTATIN CALCIUM
     Indication: PRODUCT USED FOR UNKNOWN INDICATION
     Dosage: 20 MG, DAILY
     Route: 065
  3. AMLODIPINE [Suspect]
     Active Substance: AMLODIPINE BESYLATE
     Indication: HYPERTENSION
     Dosage: 5 MG, DAILY
     Route: 065
     Dates: end: 20161021
  4. AMLODIPINE [Suspect]
     Active Substance: AMLODIPINE BESYLATE
     Dosage: 2.5 MG
     Route: 065

REACTIONS (10)
  - Nasopharyngitis [Unknown]
  - Dyspnoea [Unknown]
  - Bradycardia [Recovered/Resolved]
  - Micturition urgency [Recovering/Resolving]
  - Urinary tract pain [Recovering/Resolving]
  - Dizziness [Recovered/Resolved]
  - Fatigue [Unknown]
  - Gait disturbance [Recovered/Resolved]
  - Hypotension [Recovered/Resolved]
  - Pollakiuria [Recovering/Resolving]

NARRATIVE: CASE EVENT DATE: 201609
